FAERS Safety Report 16715100 (Version 2)
Quarter: 2019Q3

REPORT INFORMATION
  Report Type: Spontaneous
  Country: JP (occurrence: JP)
  Receive Date: 20190819
  Receipt Date: 20190828
  Transmission Date: 20191005
  Serious: Yes (Life-Threatening, Other)
  Sender: FDA-Public Use
  Company Number: JP-JNJFOC-20190324223

PATIENT
  Age: 57 Year
  Sex: Male

DRUGS (28)
  1. RITUXIMAB. [Suspect]
     Active Substance: RITUXIMAB
     Dosage: CYCLIC
     Route: 041
     Dates: start: 20150707
  2. MOSAPRIDE CITRATE [Concomitant]
     Active Substance: MOSAPRIDE CITRATE
     Indication: PRODUCT USED FOR UNKNOWN INDICATION
     Route: 048
     Dates: start: 20160920, end: 20170123
  3. REBAMIPIDE [Concomitant]
     Active Substance: REBAMIPIDE
     Indication: PRODUCT USED FOR UNKNOWN INDICATION
     Dosage: UNKNOWN FREQUENCY
     Route: 048
     Dates: start: 20160419, end: 20170417
  4. ADRIAMYCIN [Suspect]
     Active Substance: DOXORUBICIN HYDROCHLORIDE
     Indication: B-CELL LYMPHOMA
     Dosage: CYCLIC
     Route: 065
     Dates: start: 201305, end: 201312
  5. VINCRISTINE SULFATE. [Suspect]
     Active Substance: VINCRISTINE SULFATE
     Indication: B-CELL LYMPHOMA
     Dosage: CYCLIC
     Route: 065
     Dates: start: 201305, end: 201312
  6. BENDAMUSTINE HYDROCHLORIDE. [Suspect]
     Active Substance: BENDAMUSTINE HYDROCHLORIDE
     Dosage: CYCLIC
     Route: 042
     Dates: start: 20150114, end: 20150115
  7. BENDAMUSTINE HYDROCHLORIDE. [Suspect]
     Active Substance: BENDAMUSTINE HYDROCHLORIDE
     Dosage: CYCLIC
     Route: 042
     Dates: start: 20150513, end: 20150514
  8. RITUXIMAB. [Suspect]
     Active Substance: RITUXIMAB
     Dosage: CYCLIC
     Route: 041
     Dates: start: 20150113
  9. BENDAMUSTINE HYDROCHLORIDE. [Suspect]
     Active Substance: BENDAMUSTINE HYDROCHLORIDE
     Dosage: CYCLIC
     Route: 042
     Dates: start: 20150218, end: 20150219
  10. BENDAMUSTINE HYDROCHLORIDE. [Suspect]
     Active Substance: BENDAMUSTINE HYDROCHLORIDE
     Dosage: CYCLIC
     Route: 042
     Dates: start: 20150311, end: 20150312
  11. RITUXIMAB. [Suspect]
     Active Substance: RITUXIMAB
     Dosage: CYCLIC
     Route: 041
     Dates: start: 20141215
  12. BENDAMUSTINE HYDROCHLORIDE. [Suspect]
     Active Substance: BENDAMUSTINE HYDROCHLORIDE
     Indication: B-CELL LYMPHOMA
     Dosage: CYCLIC
     Route: 042
     Dates: start: 20141216, end: 20141217
  13. RITUXIMAB. [Suspect]
     Active Substance: RITUXIMAB
     Indication: B-CELL LYMPHOMA
     Dosage: CYCLIC
     Route: 041
     Dates: start: 20130520
  14. RITUXIMAB. [Suspect]
     Active Substance: RITUXIMAB
     Dosage: CYCLIC
     Route: 041
     Dates: start: 20150217
  15. RITUXIMAB. [Suspect]
     Active Substance: RITUXIMAB
     Dosage: CYCLIC
     Route: 041
     Dates: start: 20150310
  16. RITUXIMAB. [Suspect]
     Active Substance: RITUXIMAB
     Dosage: CYCLIC
     Route: 041
     Dates: start: 20150728
  17. OLMESARTAN MEDOXOMIL. [Concomitant]
     Active Substance: OLMESARTAN MEDOXOMIL
     Indication: PRODUCT USED FOR UNKNOWN INDICATION
     Route: 048
     Dates: start: 20130425, end: 20150518
  18. BENDAMUSTINE HYDROCHLORIDE. [Suspect]
     Active Substance: BENDAMUSTINE HYDROCHLORIDE
     Dosage: CYCLIC
     Route: 042
     Dates: start: 20150415, end: 20150416
  19. CYCLOPHOSPHAMIDE. [Suspect]
     Active Substance: CYCLOPHOSPHAMIDE
     Indication: B-CELL LYMPHOMA
     Dosage: CYCLIC
     Route: 065
     Dates: start: 201305, end: 201312
  20. VONOPRAZAN [Concomitant]
     Active Substance: VONOPRAZAN
     Indication: PRODUCT USED FOR UNKNOWN INDICATION
     Route: 048
     Dates: start: 20170830, end: 20171023
  21. LINAGLIPTIN [Concomitant]
     Active Substance: LINAGLIPTIN
     Indication: PRODUCT USED FOR UNKNOWN INDICATION
     Route: 048
     Dates: start: 20151215
  22. ESOMEPRAZOLE MAGNESIUM. [Concomitant]
     Active Substance: ESOMEPRAZOLE MAGNESIUM
     Indication: PRODUCT USED FOR UNKNOWN INDICATION
     Route: 048
     Dates: start: 20171024
  23. FAMOTIDINE. [Concomitant]
     Active Substance: FAMOTIDINE
     Indication: PRODUCT USED FOR UNKNOWN INDICATION
     Route: 048
     Dates: start: 20130425, end: 20160829
  24. LOXOPROFEN SODIUM [Concomitant]
     Active Substance: LOXOPROFEN SODIUM
     Indication: PRODUCT USED FOR UNKNOWN INDICATION
     Route: 048
     Dates: start: 20160419, end: 20170417
  25. BENDAMUSTINE HYDROCHLORIDE. [Suspect]
     Active Substance: BENDAMUSTINE HYDROCHLORIDE
     Route: 042
  26. RITUXIMAB. [Suspect]
     Active Substance: RITUXIMAB
     Dosage: CYCLIC
     Route: 041
     Dates: start: 20150414
  27. RITUXIMAB. [Suspect]
     Active Substance: RITUXIMAB
     Dosage: CYCLIC
     Route: 041
     Dates: start: 20150512
  28. ONDANSETRON HYDROCHLORIDE. [Concomitant]
     Active Substance: ONDANSETRON HYDROCHLORIDE
     Indication: PRODUCT USED FOR UNKNOWN INDICATION
     Route: 041

REACTIONS (4)
  - Helicobacter sepsis [Recovered/Resolved]
  - Lung neoplasm malignant [Recovered/Resolved]
  - Myelodysplastic syndrome [Not Recovered/Not Resolved]
  - Prescribed underdose [Unknown]

NARRATIVE: CASE EVENT DATE: 20160920
